FAERS Safety Report 8848195 (Version 1)
Quarter: 2012Q4

REPORT INFORMATION
  Report Type: 
  Country: FR (occurrence: FR)
  Receive Date: 20121018
  Receipt Date: 20121018
  Transmission Date: 20130627
  Serious: Yes (Life-Threatening)
  Sender: FDA-Public Use
  Company Number: FR-SANOFI-AVENTIS-2012SA074133

PATIENT
  Age: 9 Month
  Sex: Male

DRUGS (2)
  1. KERLONE [Suspect]
     Indication: DRUG USE FOR UNKNOWN INDICATION
     Route: 048
     Dates: start: 20111013, end: 20111013
  2. CATAPRESSAN [Suspect]
     Indication: DRUG USE FOR UNKNOWN INDICATION
     Dosage: strength: 0.15mg
     Route: 048
     Dates: start: 20111013, end: 20111013

REACTIONS (4)
  - Somnolence [Recovered/Resolved]
  - Accidental overdose [Recovered/Resolved]
  - Hypotension [Recovered/Resolved]
  - Bradycardia [Recovered/Resolved]
